FAERS Safety Report 25889695 (Version 1)
Quarter: 2025Q4

REPORT INFORMATION
  Report Type: Spontaneous
  Country: US (occurrence: US)
  Receive Date: 20251007
  Receipt Date: 20251007
  Transmission Date: 20260117
  Serious: Yes (Hospitalization)
  Sender: MYLAN
  Company Number: US-MYLANLABS-2025M1084989

PATIENT
  Sex: Female

DRUGS (20)
  1. LEVETIRACETAM [Suspect]
     Active Substance: LEVETIRACETAM
     Indication: Epilepsy
     Dosage: 2500 MILLIGRAM, QD
  2. LEVETIRACETAM [Suspect]
     Active Substance: LEVETIRACETAM
     Dosage: 2500 MILLIGRAM, QD
     Route: 065
  3. LEVETIRACETAM [Suspect]
     Active Substance: LEVETIRACETAM
     Dosage: 2500 MILLIGRAM, QD
     Route: 065
  4. LEVETIRACETAM [Suspect]
     Active Substance: LEVETIRACETAM
     Dosage: 2500 MILLIGRAM, QD
  5. CLOBAZAM [Suspect]
     Active Substance: CLOBAZAM
     Indication: Epilepsy
     Dosage: 20 MILLIGRAM, QD
  6. CLOBAZAM [Suspect]
     Active Substance: CLOBAZAM
     Dosage: 20 MILLIGRAM, QD
     Route: 065
  7. CLOBAZAM [Suspect]
     Active Substance: CLOBAZAM
     Dosage: 20 MILLIGRAM, QD
     Route: 065
  8. CLOBAZAM [Suspect]
     Active Substance: CLOBAZAM
     Dosage: 20 MILLIGRAM, QD
  9. CANNABIDIOL [Suspect]
     Active Substance: CANNABIDIOL
     Indication: Epilepsy
     Dosage: 1500 MILLIGRAM, QD
  10. CANNABIDIOL [Suspect]
     Active Substance: CANNABIDIOL
     Dosage: 1500 MILLIGRAM, QD
     Route: 065
  11. CANNABIDIOL [Suspect]
     Active Substance: CANNABIDIOL
     Dosage: 1500 MILLIGRAM, QD
     Route: 065
  12. CANNABIDIOL [Suspect]
     Active Substance: CANNABIDIOL
     Dosage: 1500 MILLIGRAM, QD
  13. ZONISAMIDE [Suspect]
     Active Substance: ZONISAMIDE
     Indication: Epilepsy
     Dosage: 300 MILLIGRAM, QD
  14. ZONISAMIDE [Suspect]
     Active Substance: ZONISAMIDE
     Dosage: 300 MILLIGRAM, QD
     Route: 065
  15. ZONISAMIDE [Suspect]
     Active Substance: ZONISAMIDE
     Dosage: 300 MILLIGRAM, QD
     Route: 065
  16. ZONISAMIDE [Suspect]
     Active Substance: ZONISAMIDE
     Dosage: 300 MILLIGRAM, QD
  17. CENOBAMATE [Suspect]
     Active Substance: CENOBAMATE
     Indication: Epilepsy
     Dosage: UNK
  18. CENOBAMATE [Suspect]
     Active Substance: CENOBAMATE
     Dosage: UNK
     Route: 065
  19. CENOBAMATE [Suspect]
     Active Substance: CENOBAMATE
     Dosage: UNK
     Route: 065
  20. CENOBAMATE [Suspect]
     Active Substance: CENOBAMATE
     Dosage: UNK

REACTIONS (1)
  - Drug ineffective [Unknown]
